FAERS Safety Report 14113539 (Version 2)
Quarter: 2017Q4

REPORT INFORMATION
  Report Type: Spontaneous
  Country: US (occurrence: US)
  Receive Date: 20171023
  Receipt Date: 20171109
  Transmission Date: 20180321
  Serious: No
  Sender: FDA-Public Use
  Company Number: US-009507513-1709USA005941

PATIENT
  Sex: Female

DRUGS (6)
  1. ZEPATIER [Suspect]
     Active Substance: ELBASVIR\GRAZOPREVIR
     Indication: HEPATITIS C
     Dosage: TAKE 1 TABLET (50/100 MG)EVERY DAY
     Route: 048
     Dates: start: 201708
  2. HYDROCHLOROTHIAZIDE. [Concomitant]
     Active Substance: HYDROCHLOROTHIAZIDE
  3. METOPROLOL TARTRATE. [Concomitant]
     Active Substance: METOPROLOL TARTRATE
  4. MOTRIN [Concomitant]
     Active Substance: IBUPROFEN
  5. PROTONIX [Concomitant]
     Active Substance: PANTOPRAZOLE SODIUM
  6. ASPIRIN. [Concomitant]
     Active Substance: ASPIRIN

REACTIONS (9)
  - Pyrexia [Unknown]
  - Adverse event [Unknown]
  - Fatigue [Unknown]
  - Night sweats [Unknown]
  - Headache [Unknown]
  - Hyperhidrosis [Unknown]
  - Chills [Unknown]
  - Drug dose omission [Unknown]
  - Myalgia [Unknown]

NARRATIVE: CASE EVENT DATE: 2017
